FAERS Safety Report 12724906 (Version 2)
Quarter: 2016Q3

REPORT INFORMATION
  Report Type: Spontaneous
  Country: FR (occurrence: FR)
  Receive Date: 20160908
  Receipt Date: 20160914
  Transmission Date: 20161109
  Serious: Yes (Life-Threatening)
  Sender: FDA-Public Use
  Company Number: PHHY2016FR123606

PATIENT
  Age: 51 Year
  Sex: Male

DRUGS (8)
  1. VOLTARENE [Suspect]
     Active Substance: DICLOFENAC SODIUM
     Indication: BACK PAIN
     Dosage: 2 DF, QD
     Route: 048
     Dates: start: 20160808, end: 20160814
  2. CLOZAPINE. [Suspect]
     Active Substance: CLOZAPINE
     Indication: SCHIZOPHRENIA
     Dosage: 900 MG, QD
     Route: 048
     Dates: start: 1988, end: 20160815
  3. IBUPROFEN. [Suspect]
     Active Substance: IBUPROFEN
     Indication: BACK PAIN
     Dosage: UNK
     Route: 048
     Dates: start: 20160805, end: 20160808
  4. NOZINAN [Suspect]
     Active Substance: LEVOMEPROMAZINE
     Dosage: 150 MG, QD
     Route: 048
     Dates: start: 20160729, end: 20160815
  5. STILNOX [Concomitant]
     Active Substance: ZOLPIDEM TARTRATE
     Indication: INSOMNIA
     Dosage: 1 DF, QD
     Route: 065
     Dates: end: 20160815
  6. NOZINAN [Suspect]
     Active Substance: LEVOMEPROMAZINE
     Dosage: 200 MG, QD
     Route: 048
     Dates: start: 20160722, end: 20160729
  7. NOZINAN [Suspect]
     Active Substance: LEVOMEPROMAZINE
     Indication: ANXIETY
     Dosage: 75 TO 125 MG, UNK
     Route: 048
     Dates: end: 20160722
  8. VALIUM [Concomitant]
     Active Substance: DIAZEPAM
     Indication: ANXIETY
     Dosage: 40 MG, QD
     Route: 065
     Dates: end: 20160815

REACTIONS (1)
  - Ileus paralytic [Recovered/Resolved]

NARRATIVE: CASE EVENT DATE: 20160815
